FAERS Safety Report 15144253 (Version 1)
Quarter: 2018Q4

REPORT INFORMATION
  Report Type: Spontaneous
  Country: US (occurrence: US)
  Receive Date: 20180713
  Receipt Date: 20180713
  Transmission Date: 20190204
  Serious: No
  Sender: FDA-Public Use
  Company Number: US-PERRIGO-17US028160

PATIENT
  Sex: Male
  Weight: 72.56 kg

DRUGS (7)
  1. MINOXIDIL (FOR MEN) [Suspect]
     Active Substance: MINOXIDIL
     Indication: ALOPECIA
     Dosage: UNKNOWN, UNKNOWN
     Route: 061
     Dates: start: 2002, end: 2015
  2. ROGAINE [Suspect]
     Active Substance: MINOXIDIL
     Indication: ALOPECIA
     Dosage: UNKNOWN, UNKNOWN
     Route: 061
     Dates: start: 2002, end: 2015
  3. VITAMIN D [Concomitant]
     Active Substance: CHOLECALCIFEROL
     Indication: PRODUCT USED FOR UNKNOWN INDICATION
     Dosage: UNK
     Route: 065
  4. BIOTIN [Concomitant]
     Active Substance: BIOTIN
     Indication: PRODUCT USED FOR UNKNOWN INDICATION
     Dosage: UNK
     Route: 065
  5. VITAMIN C                          /00008004/ [Concomitant]
     Indication: PRODUCT USED FOR UNKNOWN INDICATION
     Dosage: UNK
     Route: 065
  6. MINOXIDIL. [Suspect]
     Active Substance: MINOXIDIL
     Indication: ALOPECIA
     Dosage: UNKNOWN, BID
     Route: 061
     Dates: start: 2002, end: 2015
  7. MULTIVITAMINS, PLAIN [Concomitant]
     Active Substance: VITAMINS
     Indication: SUPPLEMENTATION THERAPY
     Dosage: UNK
     Route: 065

REACTIONS (9)
  - Skin lesion [Recovering/Resolving]
  - Application site exfoliation [Recovering/Resolving]
  - Condition aggravated [Recovering/Resolving]
  - Psoriasis [Not Recovered/Not Resolved]
  - Application site scab [Not Recovered/Not Resolved]
  - Application site infection [Recovering/Resolving]
  - Application site dryness [Recovering/Resolving]
  - Application site rash [Recovering/Resolving]
  - Application site pain [Recovering/Resolving]
